FAERS Safety Report 6483076-X (Version None)
Quarter: 2009Q4

REPORT INFORMATION
  Report Type: 
  Country: None (occurrence: None)
  Receive Date: 20091209
  Receipt Date: 20091201
  Transmission Date: 20100525
  Serious: Yes (Hospitalization, Other)
  Sender: FDA-Public Use
  Company Number: US-ROCHE-654455

PATIENT
  Sex: Female
  Weight: 65.8 kg

DRUGS (5)
  1. CAPECITABINE [Suspect]
     Indication: COLON CANCER
     Dosage: 1ST CYCLE; 8 PILLS DAILY
     Route: 048
     Dates: start: 20090722, end: 20090809
  2. CAPECITABINE [Suspect]
     Route: 048
     Dates: start: 20090814, end: 20090831
  3. VITAMIN B1 TAB [Concomitant]
  4. METOPROLOL [Concomitant]
     Route: 048
  5. AMLODIPINE [Concomitant]
     Route: 048

REACTIONS (16)
  - ABDOMINAL PAIN [None]
  - CONVULSION [None]
  - DECREASED APPETITE [None]
  - DEHYDRATION [None]
  - DIARRHOEA [None]
  - DIZZINESS [None]
  - LOSS OF CONSCIOUSNESS [None]
  - MUCOSAL INFLAMMATION [None]
  - NAUSEA [None]
  - ORTHOSTATIC HYPOTENSION [None]
  - PALMAR-PLANTAR ERYTHRODYSAESTHESIA SYNDROME [None]
  - SYNCOPE [None]
  - TONGUE DISCOLOURATION [None]
  - VAGINAL HAEMORRHAGE [None]
  - VOMITING [None]
  - WEIGHT DECREASED [None]
